FAERS Safety Report 10471565 (Version 1)
Quarter: 2014Q3

REPORT INFORMATION
  Report Type: Spontaneous
  Country: US (occurrence: US)
  Receive Date: 20140923
  Receipt Date: 20140923
  Transmission Date: 20150326
  Serious: Yes (Other)
  Sender: FDA-Public Use
  Company Number: ALCN2014US005206

PATIENT
  Age: 49 Year
  Sex: Male

DRUGS (10)
  1. PHENYLEPHRINE HCL [Suspect]
     Active Substance: PHENYLEPHRINE HYDROCHLORIDE
     Indication: CATARACT OPERATION
     Dosage: UNK
     Route: 047
     Dates: start: 20140527, end: 20140527
  2. KETOROLAC TROMETHAMINE. [Suspect]
     Active Substance: KETOROLAC TROMETHAMINE
     Indication: CATARACT OPERATION
     Dosage: UNK
     Route: 047
     Dates: start: 20140527, end: 20140527
  3. CYCLOGYL [Suspect]
     Active Substance: CYCLOPENTOLATE HYDROCHLORIDE
     Indication: CATARACT OPERATION
     Dosage: UNK
     Route: 047
     Dates: start: 20140527, end: 20140527
  4. VIGAMOX [Suspect]
     Active Substance: MOXIFLOXACIN HYDROCHLORIDE
     Indication: CATARACT OPERATION
     Dosage: UNK
     Route: 047
     Dates: start: 20140527, end: 20140527
  5. VOLTAREN [Suspect]
     Active Substance: DICLOFENAC SODIUM
     Indication: CATARACT OPERATION
     Dosage: 1 GTT, QID
     Route: 047
     Dates: start: 20140525
  6. HALCION [Concomitant]
     Active Substance: TRIAZOLAM
     Indication: CATARACT OPERATION
     Dosage: UNK
     Dates: start: 20140527, end: 20140527
  7. BETADINE [Suspect]
     Active Substance: POVIDONE-IODINE
     Indication: CATARACT OPERATION
     Dosage: UNK
     Route: 047
     Dates: start: 20140527, end: 20140527
  8. LIDOCAINE. [Concomitant]
     Active Substance: LIDOCAINE
     Indication: CATARACT OPERATION
     Dosage: UNK
     Route: 047
     Dates: start: 20140527, end: 20140527
  9. PRED FORTE [Concomitant]
     Active Substance: PREDNISOLONE ACETATE
     Indication: CATARACT OPERATION
     Dosage: 1 GTT, QID
     Route: 047
     Dates: start: 20140527, end: 20140625
  10. OCUFLOX//OFLOXACIN [Concomitant]
     Indication: CATARACT OPERATION
     Dosage: UNK
     Route: 047
     Dates: start: 20140525

REACTIONS (14)
  - Ocular hyperaemia [Recovered/Resolved]
  - Corneal oedema [Recovered/Resolved]
  - Vision blurred [Recovered/Resolved]
  - Punctate keratitis [Recovered/Resolved]
  - Ocular discomfort [Recovered/Resolved]
  - Eye irritation [Recovered/Resolved]
  - Eye discharge [Recovered/Resolved]
  - Foreign body sensation in eyes [Recovered/Resolved]
  - Corneal opacity [Recovered/Resolved]
  - Eye pain [Recovered/Resolved]
  - Corneal abrasion [Recovered/Resolved]
  - Visual acuity reduced [Recovered/Resolved]
  - Anterior chamber cell [Recovered/Resolved]
  - Corneal epithelium defect [Recovered/Resolved]

NARRATIVE: CASE EVENT DATE: 20140528
